FAERS Safety Report 16724401 (Version 1)
Quarter: 2019Q3

REPORT INFORMATION
  Report Type: Spontaneous
  Country: CA (occurrence: CA)
  Receive Date: 20190821
  Receipt Date: 20190821
  Transmission Date: 20191005
  Serious: Yes (Hospitalization)
  Sender: FDA-Public Use
  Company Number: CA-PFIZER INC-2017117838

PATIENT
  Age: 79 Year
  Sex: Female

DRUGS (8)
  1. MAR LETROZOLE [Concomitant]
     Dosage: 2.5 MG, 1X/DAY (AT THE SAME HOUR EVERY DAY)
     Dates: start: 20170223
  2. IBRANCE [Suspect]
     Active Substance: PALBOCICLIB
     Indication: BREAST CANCER METASTATIC
     Dosage: 125 MG, CYCLIC (ONCE A DAY WITH FOOD FOR 21 DAYS AND STOP FOR 7 DAYS 28-DAY CYCLE AND REPEAT CYCLE)
     Dates: start: 20170306
  3. ESOMEPRAZOLE. [Concomitant]
     Active Substance: ESOMEPRAZOLE MAGNESIUM
     Dosage: 40 MG, 2X/DAY (MORNING AND EVENING 30 MINUTES BEFORE BREAKFAST AND SUPPER)
     Dates: start: 20170223
  4. SYNTHROID [Concomitant]
     Active Substance: LEVOTHYROXINE SODIUM
     Dosage: 0.075 MG, 1X/DAY (IN THE MORNING)
     Dates: start: 20170223
  5. OPUS CAL D 400 [Concomitant]
     Dosage: 1 DF, 2X/DAY (AT BREAKFAST AND AT SUPPER) (500MG + 400IU)
     Dates: start: 20170223
  6. VALSARTAN. [Concomitant]
     Active Substance: VALSARTAN
     Dosage: 160 MG, 1X/DAY (IN THE MORNING)
     Dates: start: 20170223
  7. LUMIGAN [Concomitant]
     Active Substance: BIMATOPROST
     Dosage: 1 GTT, 1X/DAY (1 DROP IN LEFT EYE AT BEDTIME)
     Dates: start: 20170220
  8. BISOPROLOL [Concomitant]
     Active Substance: BISOPROLOL
     Dosage: 2.5 MG, 1X/DAY (1/2 TABLET OF 5MG, IN THE MORNING AT BREAKFAST)
     Dates: start: 20170223

REACTIONS (7)
  - Asthenia [Recovered/Resolved]
  - Feeling hot [Recovered/Resolved]
  - Bacterial infection [Unknown]
  - Hypertension [Recovered/Resolved]
  - Blood pressure decreased [Unknown]
  - Dizziness [Recovered/Resolved]
  - Faeces discoloured [Unknown]

NARRATIVE: CASE EVENT DATE: 201703
